FAERS Safety Report 22116212 (Version 2)
Quarter: 2023Q2

REPORT INFORMATION
  Report Type: Spontaneous
  Country: AT (occurrence: AT)
  Receive Date: 20230320
  Receipt Date: 20230403
  Transmission Date: 20230721
  Serious: Yes (Life-Threatening, Hospitalization)
  Sender: FDA-Public Use
  Company Number: AT-BAYER-2023A036249

PATIENT
  Age: 44 Year
  Sex: Male
  Weight: 71 kg

DRUGS (3)
  1. ULTRAVIST [Suspect]
     Active Substance: IOPROMIDE
     Indication: Positron emission tomogram
     Dosage: 100 ML, ONCE
     Route: 042
     Dates: start: 20230314, end: 20230314
  2. SODIUM CHLORIDE [Concomitant]
     Active Substance: SODIUM CHLORIDE
     Dosage: 71 ML, ONCE
     Route: 042
     Dates: start: 20230314, end: 20230314
  3. FLUDEOXYGLUCOSE F-18 [Concomitant]
     Active Substance: FLUDEOXYGLUCOSE F-18
     Dosage: 1.13 ML, ONCE
     Dates: start: 20230314, end: 20230314

REACTIONS (4)
  - Unresponsive to stimuli [Recovered/Resolved]
  - Nausea [Recovered/Resolved]
  - Cold sweat [Recovered/Resolved]
  - Urticaria [Recovered/Resolved]

NARRATIVE: CASE EVENT DATE: 20230314
